FAERS Safety Report 6506358-1 (Version None)
Quarter: 2009Q4

REPORT INFORMATION
  Report Type: 
  Country: None (occurrence: None)
  Receive Date: 20091218
  Receipt Date: 20091209
  Transmission Date: 20100525
  Serious: Yes (Other)
  Sender: FDA-Public Use
  Company Number: US-GENENTECH-295828

PATIENT
  Age: 36 Year
  Sex: Male
  Weight: 97.7 kg

DRUGS (4)
  1. NUTROPIN [Suspect]
     Indication: GROWTH HORMONE DEFICIENCY
     Dosage: 1 IU, BID
     Route: 058
  2. LEVOTHYROXINE SODIUM [Concomitant]
     Indication: DRUG USE FOR UNKNOWN INDICATION
  3. ZYRTEC [Concomitant]
     Indication: URTICARIA
  4. ZYRTEC [Concomitant]
     Indication: ANGIOEDEMA

REACTIONS (2)
  - ANGIOEDEMA [None]
  - URTICARIA [None]
